FAERS Safety Report 9293587 (Version 1)
Quarter: 2013Q2

REPORT INFORMATION
  Report Type: Spontaneous
  Country: PL (occurrence: PL)
  Receive Date: 20130516
  Receipt Date: 20130516
  Transmission Date: 20140414
  Serious: Yes (Other)
  Sender: FDA-Public Use
  Company Number: PL-BAXTER-2012BAX010612

PATIENT
  Age: 49 Year
  Sex: Male

DRUGS (1)
  1. KIOVIG 100 MG/ML SOLUTION FOR INFUSION [Suspect]
     Indication: POLYNEUROPATHY CHRONIC

REACTIONS (1)
  - Renal failure acute [Recovered/Resolved]
